FAERS Safety Report 6094570-8 (Version None)
Quarter: 2009Q1

REPORT INFORMATION
  Report Type: 
  Country: None (occurrence: None)
  Receive Date: 20090226
  Receipt Date: 20090221
  Transmission Date: 20090719
  Serious: No
  Sender: FDA-Public Use
  Company Number: US-B.I. PHARMACEUTICALS,INC./RIDGEFIELD-2009-BP-02182BP

PATIENT
  Age: 60 Year
  Sex: Female

DRUGS (4)
  1. ZANTAC 150 [Suspect]
     Indication: DYSPEPSIA
     Route: 048
     Dates: start: 20070101
  2. BETA BLOCKER [Concomitant]
     Indication: TACHYCARDIA
  3. ASPIRIN [Concomitant]
     Dosage: 81MG
  4. MIRALAX [Concomitant]

REACTIONS (1)
  - OSTEOPENIA [None]
